FAERS Safety Report 10203452 (Version 2)
Quarter: 2014Q3

REPORT INFORMATION
  Report Type: Spontaneous
  Country: JP (occurrence: None)
  Receive Date: 20140523
  Receipt Date: 20140818
  Transmission Date: 20150326
  Serious: Yes (Death, Life-Threatening, Other)
  Sender: FDA-Public Use
  Company Number: SYM-2014-21316

PATIENT
  Age: 74 Year
  Sex: Female
  Weight: 52 kg

DRUGS (14)
  1. GOODMIN [Concomitant]
     Active Substance: BROTIZOLAM
  2. REFLEX [Concomitant]
     Active Substance: MIRTAZAPINE
  3. CHOREAZINE (TETRABENAZINE) (12.5 MILLIGRAM, TABLET) (TETRABENAZINE) [Suspect]
     Active Substance: TETRABENAZINE
     Indication: HUNTINGTON^S DISEASE
     Route: 048
     Dates: start: 20130520, end: 20131015
  4. SELENCIA-R (VALPROATE SODIUM) [Concomitant]
     Active Substance: VALPROATE SODIUM
  5. LINTON (HALOPERIDOL) [Concomitant]
  6. SYMMETREL [Concomitant]
     Active Substance: AMANTADINE HYDROCHLORIDE
  7. DILTIAZEM HYDROCHLORIDE. [Concomitant]
     Active Substance: DILTIAZEM HYDROCHLORIDE
  8. PAKISONAL (TRIHEXYPHENIDYL HYDROCHLORIDE) [Concomitant]
  9. RISPERDAL [Concomitant]
     Active Substance: RISPERIDONE
  10. ZYPREXA [Concomitant]
     Active Substance: OLANZAPINE
  11. HALOPERIDOL. [Concomitant]
     Active Substance: HALOPERIDOL
  12. SULPIRIDE [Concomitant]
     Active Substance: SULPIRIDE
  13. DILTIAZEM HYDROCHLORIDE. [Concomitant]
     Active Substance: DILTIAZEM HYDROCHLORIDE
  14. DOGMATYL (SULPIRIDE) [Concomitant]

REACTIONS (3)
  - Pharyngeal oedema [None]
  - Mania [None]
  - Neuroleptic malignant syndrome [None]
